FAERS Safety Report 4523990-5 (Version None)
Quarter: 2004Q4

REPORT INFORMATION
  Report Type: 
  Country: None (occurrence: None)
  Receive Date: 20041209
  Receipt Date: 20041129
  Transmission Date: 20050328
  Serious: Yes (Other)
  Sender: FDA-Public Use
  Company Number: USA-2004-0017312

PATIENT
  Age: 61 Year
  Sex: Female

DRUGS (10)
  1. OXYCONTIN [Suspect]
     Indication: PAIN
     Dosage: SEE IMAGE
     Route: 048
  2. SENOKOT [Concomitant]
  3. MS CONTIN [Concomitant]
  4. TENORMIN [Concomitant]
  5. GLUCOTROL [Concomitant]
  6. SYNTHROID [Concomitant]
  7. ZOCOR [Concomitant]
  8. NEURONTIN [Concomitant]
  9. LASIX [Concomitant]
  10. VICODIN ES [Concomitant]

REACTIONS (16)
  - CARPAL TUNNEL SYNDROME [None]
  - CONSTIPATION [None]
  - DEAFNESS [None]
  - DIABETES MELLITUS [None]
  - DIZZINESS [None]
  - DRUG INEFFECTIVE [None]
  - DRUG WITHDRAWAL SYNDROME [None]
  - GASTROINTESTINAL DISORDER [None]
  - GENERALISED OEDEMA [None]
  - HYPERTENSION [None]
  - PAIN [None]
  - PANIC ATTACK [None]
  - RECTAL HAEMORRHAGE [None]
  - STOOL ANALYSIS ABNORMAL [None]
  - SUICIDAL IDEATION [None]
  - TYMPANIC MEMBRANE PERFORATION [None]
